FAERS Safety Report 7124265-0 (Version None)
Quarter: 2010Q4

REPORT INFORMATION
  Report Type: 
  Country: None (occurrence: None)
  Receive Date: 20101126
  Receipt Date: 20101115
  Transmission Date: 20110411
  Serious: Yes (Hospitalization)
  Sender: FDA-Public Use
  Company Number: PHHY2010US41257

PATIENT
  Sex: Female

DRUGS (2)
  1. EXJADE [Suspect]
     Indication: MYELODYSPLASTIC SYNDROME
     Dosage: 500 MG, QD
     Route: 048
  2. EXJADE [Suspect]
     Dosage: 500 MG, QOD
     Route: 048

REACTIONS (6)
  - APHAGIA [None]
  - BLOOD DISORDER [None]
  - DIZZINESS [None]
  - FATIGUE [None]
  - RED BLOOD CELL COUNT DECREASED [None]
  - VOMITING [None]
